FAERS Safety Report 7803994-7 (Version None)
Quarter: 2011Q4

REPORT INFORMATION
  Report Type: 
  Country: None (occurrence: None)
  Receive Date: 20111010
  Receipt Date: 20111003
  Transmission Date: 20120403
  Serious: Yes (Hospitalization, Other)
  Sender: FDA-Public Use
  Company Number: US-JNJFOC-20110805527

PATIENT
  Sex: Male
  Weight: 86.18 kg

DRUGS (2)
  1. DURAGESIC-100 [Suspect]
     Route: 062
     Dates: start: 20110701
  2. DURAGESIC-100 [Suspect]
     Indication: PAIN
     Route: 062
     Dates: start: 20030101

REACTIONS (11)
  - INSOMNIA [None]
  - WRONG TECHNIQUE IN DRUG USAGE PROCESS [None]
  - PRODUCT ADHESION ISSUE [None]
  - NEUROPATHY PERIPHERAL [None]
  - SLEEP APNOEA SYNDROME [None]
  - WITHDRAWAL SYNDROME [None]
  - CHEST DISCOMFORT [None]
  - TESTICULAR PAIN [None]
  - TINNITUS [None]
  - FEELING ABNORMAL [None]
  - TREATMENT NONCOMPLIANCE [None]
